FAERS Safety Report 4870208-X (Version None)
Quarter: 2005Q4

REPORT INFORMATION
  Report Type: 
  Country: None (occurrence: None)
  Receive Date: 20051228
  Receipt Date: 20051222
  Transmission Date: 20060501
  Serious: Yes (Hospitalization, Other)
  Sender: FDA-Public Use
  Company Number: 200510936BVD

PATIENT
  Age: 63 Year
  Sex: Female
  Weight: 48 kg

DRUGS (6)
  1. AVELOX [Suspect]
     Indication: PNEUMONIA
     Dosage: 400 MG, TOTAL DAILY, ORAL
     Route: 048
     Dates: start: 20050921
  2. METOPROLOL [Concomitant]
  3. ENALAPRIL [Concomitant]
  4. PRAVASTATIN [Concomitant]
  5. ROCALTROL [Concomitant]
  6. CALCIUM GLUCONATE [Concomitant]

REACTIONS (1)
  - NEPHRITIS INTERSTITIAL [None]
